FAERS Safety Report 5605467-9 (Version None)
Quarter: 2008Q1

REPORT INFORMATION
  Report Type: 
  Country: None (occurrence: None)
  Receive Date: 20080124
  Receipt Date: 20080124
  Transmission Date: 20080703
  Serious: Yes (Hospitalization)
  Sender: FDA-Public Use
  Company Number: None

PATIENT
  Sex: Female
  Weight: 126.3 kg

DRUGS (12)
  1. ARIMIDEX [Suspect]
  2. ALLEGRA [Concomitant]
  3. COREG CR [Concomitant]
  4. GLYBURIDE [Concomitant]
  5. LASIX [Concomitant]
  6. LIDODERM [Concomitant]
  7. MAGNESIUM OXIDE [Concomitant]
  8. NORVASC [Concomitant]
  9. POTASSIUM CHLORIDE [Concomitant]
  10. PROTONIX [Concomitant]
  11. SINGULAIR [Concomitant]
  12. VISTA [Concomitant]

REACTIONS (1)
  - CHRONIC OBSTRUCTIVE PULMONARY DISEASE [None]
